FAERS Safety Report 18654485 (Version 1)
Quarter: 2020Q4

REPORT INFORMATION
  Report Type: Spontaneous
  Country: US (occurrence: US)
  Receive Date: 20201223
  Receipt Date: 20201223
  Transmission Date: 20210114
  Serious: Yes (Hospitalization)
  Sender: FDA-Public Use
  Company Number: None

PATIENT
  Age: 66 Year
  Sex: Male
  Weight: 81.9 kg

DRUGS (10)
  1. FENTANYL. [Concomitant]
     Active Substance: FENTANYL
  2. LORAZEPAM. [Concomitant]
     Active Substance: LORAZEPAM
  3. CISPLATIN. [Suspect]
     Active Substance: CISPLATIN
     Dates: end: 20200923
  4. FLUOXETINE [Concomitant]
     Active Substance: FLUOXETINE HYDROCHLORIDE
  5. LIDOCAINE VISCOUS\DIPHENHYDRAMINE\ALUM/MAG HYDROX-SIMETHICONE [Concomitant]
  6. NYSTATIN. [Concomitant]
     Active Substance: NYSTATIN
  7. ATORVASTATIN [Concomitant]
     Active Substance: ATORVASTATIN
  8. FLUCONAZOLE. [Concomitant]
     Active Substance: FLUCONAZOLE
  9. OXYCODONE [Concomitant]
     Active Substance: OXYCODONE
  10. PROCHLORPERAZINE. [Concomitant]
     Active Substance: PROCHLORPERAZINE

REACTIONS (6)
  - Abnormal loss of weight [None]
  - Decreased appetite [None]
  - Nausea [None]
  - Dysphagia [None]
  - Ageusia [None]
  - Hypophagia [None]

NARRATIVE: CASE EVENT DATE: 20201005
